FAERS Safety Report 18352689 (Version 1)
Quarter: 2020Q4

REPORT INFORMATION
  Report Type: Spontaneous
  Country: ES (occurrence: ES)
  Receive Date: 20201007
  Receipt Date: 20201007
  Transmission Date: 20210114
  Serious: Yes (Hospitalization)
  Sender: FDA-Public Use
  Company Number: ES-ACCORD-204443

PATIENT
  Age: 55 Year
  Sex: Male
  Weight: 64 kg

DRUGS (8)
  1. FLUOROURACIL ACCORD [Suspect]
     Active Substance: FLUOROURACIL
     Indication: DUCTAL ADENOCARCINOMA OF PANCREAS
     Dosage: DOSE: (400 MG/M2); EVERY TWO WEEKS, EACH 4-WEEK CYCLE,
     Route: 040
     Dates: start: 20191113, end: 20191113
  2. FLUOROURACIL ACCORD [Suspect]
     Active Substance: FLUOROURACIL
     Indication: DUCTAL ADENOCARCINOMA OF PANCREAS
     Dosage: DOSE: (2400 MG/M2); EVERY TWO WEEKS, EACH 4-WEEK CYCLE,
     Route: 040
     Dates: start: 20191113, end: 20191113
  3. IRINOTECAN AUROVITAS [Suspect]
     Active Substance: IRINOTECAN
     Indication: DUCTAL ADENOCARCINOMA OF PANCREAS
     Dosage: (180 MG/M2); EVERY TWO WEEKS, EACH 4-WEEK CYCLE
     Route: 042
     Dates: start: 20191113, end: 20191113
  4. KREON [Concomitant]
     Active Substance: PANCRELIPASE
     Indication: BARRETT^S OESOPHAGUS
     Dosage: (3 IN 1 D)
     Route: 048
  5. ERYASPASE [Suspect]
     Active Substance: ASPARAGINASE
     Indication: DUCTAL ADENOCARCINOMA OF PANCREAS
     Dosage: EVERY TWO WEEKS, EACH 4-WEEK CYCLE
     Route: 042
     Dates: start: 20191113, end: 20191113
  6. LEUCOVORIN TEVA [Suspect]
     Active Substance: LEUCOVORIN
     Indication: DUCTAL ADENOCARCINOMA OF PANCREAS
     Dosage: (400 MG/M2); EVERY TWO WEEKS, EACH 4-WEEK CYCLE
     Route: 042
     Dates: start: 20191113, end: 20191113
  7. OMEPRAZOLE. [Concomitant]
     Active Substance: OMEPRAZOLE
     Indication: BARRETT^S OESOPHAGUS
     Dosage: 20 MG 1 IN 1 D
     Route: 048
     Dates: start: 2004
  8. LORAZEPAM. [Concomitant]
     Active Substance: LORAZEPAM
     Indication: INSOMNIA
     Dosage: (1 MG,2 IN 1 D)
     Route: 048
     Dates: start: 2018

REACTIONS (1)
  - Pyrexia [Recovered/Resolved]

NARRATIVE: CASE EVENT DATE: 20191116
